FAERS Safety Report 5169582-9 (Version None)
Quarter: 2006Q4

REPORT INFORMATION
  Report Type: 
  Country: None (occurrence: None)
  Receive Date: 20060918
  Receipt Date: 20051018
  Transmission Date: 20070319
  Serious: Yes (Hospitalization)
  Sender: FDA-Public Use
  Company Number: US-JNJFOC-20051004372

PATIENT
  Age: 45 Year
  Sex: Female
  Weight: 83.9154 kg

DRUGS (2)
  1. TOPAMAX [Suspect]
     Indication: MIGRAINE PROPHYLAXIS
     Dosage: 300 MG, IN 1 DAY, ORAL
     Route: 048
     Dates: start: 20031018
  2. YASMINE (DROSPIRENONE) [Concomitant]

REACTIONS (1)
  - MIGRAINE [None]
